FAERS Safety Report 8439285-3 (Version None)
Quarter: 2012Q2

REPORT INFORMATION
  Report Type: 
  Country: None (occurrence: None)
  Receive Date: 20120615
  Receipt Date: 20120611
  Transmission Date: 20120825
  Serious: Yes (Hospitalization, Other)
  Sender: FDA-Public Use
  Company Number: PHHY2012DE051046

PATIENT
  Sex: Female

DRUGS (6)
  1. AMLODIPINE [Concomitant]
  2. RAMIPRIL [Concomitant]
     Dates: start: 20110701
  3. RASILEZ [Suspect]
     Dosage: 1 DF, QD
     Route: 048
     Dates: start: 20080101
  4. METHOTREXATE [Concomitant]
     Indication: RHEUMATOID ARTHRITIS
  5. MOXONIDINE [Concomitant]
  6. TORSEMIDE [Concomitant]

REACTIONS (2)
  - RHEUMATOID ARTHRITIS [None]
  - UROSEPSIS [None]
